FAERS Safety Report 10157913 (Version 1)
Quarter: 2014Q2

REPORT INFORMATION
  Report Type: Spontaneous
  Country: US (occurrence: US)
  Receive Date: 20140507
  Receipt Date: 20140507
  Transmission Date: 20141212
  Serious: Yes (Hospitalization)
  Sender: FDA-Public Use
  Company Number: US-GLAXOSMITHKLINE-A0636001A

PATIENT
  Age: 55 Year
  Sex: Female
  Weight: 45.5 kg

DRUGS (25)
  1. IMITREX [Suspect]
     Indication: MIGRAINE
     Route: 058
     Dates: end: 2004
  2. IMITREX [Suspect]
     Indication: MIGRAINE
     Route: 045
  3. LAMICTAL [Suspect]
     Indication: CONVULSION
     Dosage: 12.5MG PER DAY
     Route: 048
     Dates: start: 200611, end: 20061214
  4. KEPPRA [Suspect]
     Indication: CONVULSION
     Route: 065
  5. PENICILLIN [Suspect]
     Indication: PRODUCT USED FOR UNKNOWN INDICATION
     Route: 065
  6. TEGRETAL [Suspect]
     Indication: CONVULSION
     Dosage: 800MG PER DAY
     Route: 065
  7. PHENOBARBITAL [Suspect]
     Indication: PRODUCT USED FOR UNKNOWN INDICATION
     Route: 065
  8. DIAZEPAM [Suspect]
     Indication: CONVULSION
     Route: 065
  9. ZONEGRAN [Concomitant]
  10. LIPITOR [Concomitant]
  11. COZAAR [Concomitant]
  12. POTASSIUM [Concomitant]
  13. COENZYME Q10 [Concomitant]
  14. ATIVAN [Concomitant]
  15. ALEVE [Concomitant]
  16. VALIUM [Concomitant]
  17. VITAMIN D [Concomitant]
  18. CALCITRIOL [Concomitant]
  19. CALCIUM [Concomitant]
  20. VITAMIN B12 [Concomitant]
  21. LORAZEPAM [Concomitant]
  22. VITAMIN C [Concomitant]
  23. LYSINE [Concomitant]
  24. MELATONIN [Concomitant]
  25. MAGNESIUM [Concomitant]

REACTIONS (27)
  - Convulsion [Unknown]
  - Pain in jaw [Unknown]
  - Angina pectoris [Unknown]
  - Paraesthesia oral [Unknown]
  - Oral discomfort [Unknown]
  - Pruritus [Unknown]
  - Gait disturbance [Unknown]
  - Weight increased [Unknown]
  - Limb injury [Unknown]
  - Nerve injury [Unknown]
  - Ear injury [Unknown]
  - Drug hypersensitivity [Unknown]
  - Rash [Unknown]
  - Swollen tongue [Unknown]
  - Dyspnoea [Unknown]
  - Rash generalised [Unknown]
  - Nausea [Unknown]
  - Diarrhoea [Unknown]
  - Gingival discolouration [Unknown]
  - Tooth discolouration [Unknown]
  - Bone disorder [Unknown]
  - Bone loss [Unknown]
  - Abnormal behaviour [Unknown]
  - Anxiety [Unknown]
  - Agitation [Unknown]
  - Weight decreased [Unknown]
  - Chest pain [Unknown]
